FAERS Safety Report 5431744-0 (Version None)
Quarter: 2007Q3

REPORT INFORMATION
  Report Type: 
  Country: None (occurrence: None)
  Receive Date: 20070830
  Receipt Date: 20070822
  Transmission Date: 20080115
  Serious: Yes (Hospitalization)
  Sender: FDA-Public Use
  Company Number: US-SHR-US-2007-031590

PATIENT
  Age: 40 Year
  Sex: Male

DRUGS (1)
  1. BETASERON [Suspect]
     Indication: MULTIPLE SCLEROSIS
     Dosage: 4 MIU, EVERY 2D
     Route: 058
     Dates: start: 20070723, end: 20070814

REACTIONS (6)
  - COORDINATION ABNORMAL [None]
  - CSF PROTEIN INCREASED [None]
  - DYSARTHRIA [None]
  - DYSKINESIA [None]
  - MOTOR DYSFUNCTION [None]
  - TREMOR [None]
